FAERS Safety Report 5140632-9 (Version None)
Quarter: 2006Q4

REPORT INFORMATION
  Report Type: 
  Country: None (occurrence: None)
  Receive Date: 20061025
  Receipt Date: 20061012
  Transmission Date: 20070319
  Serious: Yes (Hospitalization)
  Sender: FDA-Public Use
  Company Number: 2006126019

PATIENT
  Age: 50 Year
  Sex: Female

DRUGS (1)
  1. CLINDAMYCIN HYDROCHLORIDE [Suspect]
     Indication: TOOTH EXTRACTION

REACTIONS (7)
  - ABDOMINAL PAIN [None]
  - DIARRHOEA [None]
  - DRUG HYPERSENSITIVITY [None]
  - ILL-DEFINED DISORDER [None]
  - LEUKOCYTOSIS [None]
  - SYNCOPE [None]
  - VOMITING [None]
